FAERS Safety Report 8247427-8 (Version None)
Quarter: 2012Q1

REPORT INFORMATION
  Report Type: 
  Country: None (occurrence: None)
  Receive Date: 20120316
  Receipt Date: 20081022
  Transmission Date: 20120608
  Serious: Yes (Other)
  Sender: FDA-Public Use
  Company Number: PHEH2008US07757

PATIENT
  Sex: Male

DRUGS (14)
  1. AVAPRO [Concomitant]
  2. FLOMAX ^BOEHRINGER INGELHEIM^ (TAMULOSIN HYDROCHLORIDE) [Concomitant]
  3. ACTOS /USA/(PIOGLITAZONE, PIOGLITAZONE HYDROCHLORIDE) [Concomitant]
  4. GLUCOTROL [Concomitant]
  5. TEKTURNA [Suspect]
     Dosage: 150 MG, QD
     Dates: start: 20080715
  6. PRILOSEC [Concomitant]
  7. TOPROL-XL [Concomitant]
  8. PULMICORT [Concomitant]
  9. PAXIL [Concomitant]
  10. ASPIRIN [Concomitant]
  11. CLONIDINE [Concomitant]
  12. NEURONTIN [Concomitant]
  13. GLUCOPHAGE [Concomitant]
  14. LIPITOR [Concomitant]

REACTIONS (7)
  - DYSPHAGIA [None]
  - DYSPNOEA [None]
  - ODYNOPHAGIA [None]
  - DYSPHONIA [None]
  - PHARYNGEAL OEDEMA [None]
  - STRIDOR [None]
  - CHEST DISCOMFORT [None]
